FAERS Safety Report 25234449 (Version 1)
Quarter: 2025Q2

REPORT INFORMATION
  Report Type: Spontaneous
  Country: IT (occurrence: IT)
  Receive Date: 20250424
  Receipt Date: 20250424
  Transmission Date: 20250716
  Serious: Yes (Death)
  Sender: MYLAN
  Company Number: IT-MYLANLABS-2025M1034402

PATIENT
  Age: 68 Year
  Sex: Male

DRUGS (9)
  1. GEMCITABINE [Suspect]
     Active Substance: GEMCITABINE
     Indication: Mixed hepatocellular cholangiocarcinoma
  2. GEMCITABINE [Suspect]
     Active Substance: GEMCITABINE
  3. CAPECITABINE [Suspect]
     Active Substance: CAPECITABINE
     Indication: Mixed hepatocellular cholangiocarcinoma
     Dosage: 500 MILLIGRAM, BID
  4. CAPECITABINE [Suspect]
     Active Substance: CAPECITABINE
     Dosage: 500 MILLIGRAM, BID, FIRST LINE
  5. CAPECITABINE [Suspect]
     Active Substance: CAPECITABINE
     Dosage: 500 MILLIGRAM, BID, METRONOMIC CAPECITABINE 500MG TWICE DAILY
  6. SORAFENIB [Suspect]
     Active Substance: SORAFENIB
     Indication: Mixed hepatocellular cholangiocarcinoma
     Dosage: 600 MILLIGRAM, QD, SECOND LINE
  7. SORAFENIB [Suspect]
     Active Substance: SORAFENIB
     Dosage: 400 MILLIGRAM, QD, DOSE DECREASED
  8. REGORAFENIB [Suspect]
     Active Substance: REGORAFENIB
     Indication: Mixed hepatocellular cholangiocarcinoma
  9. CABOZANTINIB [Suspect]
     Active Substance: CABOZANTINIB
     Indication: Mixed hepatocellular cholangiocarcinoma
     Dosage: 60 MILLIGRAM, QD, FOURTH LINE

REACTIONS (4)
  - Disease progression [Fatal]
  - Drug ineffective [Fatal]
  - Platelet count decreased [Unknown]
  - Haematotoxicity [Unknown]
